FAERS Safety Report 20532740 (Version 1)
Quarter: 2022Q1

REPORT INFORMATION
  Report Type: Spontaneous
  Country: US (occurrence: None)
  Receive Date: 20220228
  Receipt Date: 20220228
  Transmission Date: 20220423
  Serious: Yes (unspecified)
  Sender: FDA-Public Use
  Company Number: None

PATIENT
  Age: 30 Year
  Sex: Female
  Weight: 82.8 kg

DRUGS (2)
  1. EVEROLIMUS [Suspect]
     Active Substance: EVEROLIMUS
     Dates: start: 20211022, end: 20220225
  2. EVEROLIMUS [Concomitant]
     Active Substance: EVEROLIMUS
     Dates: start: 20211022, end: 20220225

REACTIONS (3)
  - Hepatic steatosis [None]
  - Therapy cessation [None]
  - Hepatic enzyme increased [None]

NARRATIVE: CASE EVENT DATE: 20220228
